FAERS Safety Report 6796057-3 (Version None)
Quarter: 2010Q2

REPORT INFORMATION
  Report Type: 
  Country: None (occurrence: None)
  Receive Date: 20100625
  Receipt Date: 20100615
  Transmission Date: 20101027
  Serious: Yes (Hospitalization)
  Sender: FDA-Public Use
  Company Number: US-MYLANLABS-2010S1010606

PATIENT
  Age: 73 Year
  Sex: Female

DRUGS (1)
  1. TERAZOSIN HYDROCHLORIDE [Suspect]
     Indication: URINARY RETENTION
     Route: 048
     Dates: start: 20100611, end: 20100611

REACTIONS (6)
  - CONTUSION [None]
  - DRUG DISPENSING ERROR [None]
  - HEADACHE [None]
  - HYPOTENSION [None]
  - INCORRECT DOSE ADMINISTERED [None]
  - LOSS OF CONSCIOUSNESS [None]
